FAERS Safety Report 26099543 (Version 1)
Quarter: 2025Q4

REPORT INFORMATION
  Report Type: Spontaneous
  Country: US (occurrence: US)
  Receive Date: 20251128
  Receipt Date: 20251128
  Transmission Date: 20260118
  Serious: No
  Sender: BIOGEN
  Company Number: US-BIOGEN-2092827

PATIENT
  Age: 55 Year
  Sex: Female

DRUGS (5)
  1. VUMERITY [Suspect]
     Active Substance: DIROXIMEL FUMARATE
     Indication: Multiple sclerosis
  2. XANAX [Concomitant]
     Active Substance: ALPRAZOLAM
  3. AMBIEN [Concomitant]
     Active Substance: ZOLPIDEM TARTRATE
  4. EFFEXOR XR [Concomitant]
     Active Substance: VENLAFAXINE HYDROCHLORIDE
  5. VITAMIN D3 400 [Concomitant]

REACTIONS (4)
  - Irritability [Unknown]
  - Impatience [Unknown]
  - Scratch [Unknown]
  - Pruritus [Unknown]
